FAERS Safety Report 14899742 (Version 1)
Quarter: 2018Q2

REPORT INFORMATION
  Report Type: Report from Study
  Country: AU (occurrence: AU)
  Receive Date: 20180516
  Receipt Date: 20180516
  Transmission Date: 20180711
  Serious: Yes (Other)
  Sender: FDA-Public Use
  Company Number: AU-ROCHE-2121305

PATIENT
  Sex: Male

DRUGS (1)
  1. OCREVUS [Suspect]
     Active Substance: OCRELIZUMAB
     Indication: PRIMARY PROGRESSIVE MULTIPLE SCLEROSIS
     Dosage: 1A INFUSION ON 8-JAN-2018 AND 1B 22-JAN-2018
     Route: 041
     Dates: start: 20180108

REACTIONS (1)
  - Multiple sclerosis relapse [Not Recovered/Not Resolved]
